FAERS Safety Report 9461765 (Version 2)
Quarter: 2013Q4

REPORT INFORMATION
  Report Type: Spontaneous
  Country: GB (occurrence: GB)
  Receive Date: 20130816
  Receipt Date: 20131011
  Transmission Date: 20140711
  Serious: Yes (Other)
  Sender: FDA-Public Use
  Company Number: GB-JNJFOC-20130804978

PATIENT
  Sex: Male
  Weight: 123 kg

DRUGS (11)
  1. STELARA [Suspect]
     Indication: PSORIASIS
     Route: 058
     Dates: start: 20130130
  2. GABAPENTIN [Concomitant]
     Indication: ARTHRALGIA
     Route: 065
     Dates: start: 2010
  3. LANSOPRAZOLE [Concomitant]
     Indication: GASTROOESOPHAGEAL REFLUX DISEASE
     Route: 065
     Dates: start: 2003
  4. RANITIDINE [Concomitant]
     Indication: GASTROOESOPHAGEAL REFLUX DISEASE
     Route: 065
     Dates: start: 2008
  5. NAPROXEN [Concomitant]
     Indication: ARTHRALGIA
     Route: 065
     Dates: start: 201204
  6. PROCHLORPERAZINE [Concomitant]
     Route: 065
     Dates: start: 2002
  7. BISOPROLOL [Concomitant]
     Indication: HYPERTENSION
     Route: 065
     Dates: start: 2010
  8. ASPIRIN [Concomitant]
     Indication: HYPERTENSION
     Route: 065
     Dates: start: 2010
  9. RAMIPRIL [Concomitant]
     Indication: HYPERTENSION
     Route: 065
     Dates: start: 2010
  10. FLUOXETINE [Concomitant]
     Indication: DEPRESSION
     Route: 065
     Dates: start: 2003
  11. ATORVASTATIN [Concomitant]
     Route: 065

REACTIONS (2)
  - Psoriasis [Not Recovered/Not Resolved]
  - Skin papilloma [Not Recovered/Not Resolved]
